FAERS Safety Report 24281418 (Version 1)
Quarter: 2024Q3

REPORT INFORMATION
  Report Type: Spontaneous
  Country: US (occurrence: US)
  Receive Date: 20240904
  Receipt Date: 20240904
  Transmission Date: 20241016
  Serious: Yes (Other)
  Sender: PFIZER
  Company Number: US-PFIZER INC-202400247791

PATIENT

DRUGS (1)
  1. PAXLOVID [Suspect]
     Active Substance: NIRMATRELVIR\RITONAVIR
     Indication: COVID-19 treatment
     Dosage: UNK
     Dates: start: 20240829

REACTIONS (5)
  - Mental impairment [Unknown]
  - Diarrhoea [Unknown]
  - Lactose intolerance [Unknown]
  - Illness [Unknown]
  - Insomnia [Unknown]

NARRATIVE: CASE EVENT DATE: 20240830
